FAERS Safety Report 13076126 (Version 1)
Quarter: 2016Q4

REPORT INFORMATION
  Report Type: Spontaneous
  Country: TR (occurrence: TR)
  Receive Date: 20161230
  Receipt Date: 20161230
  Transmission Date: 20170207
  Serious: Yes (Death, Other)
  Sender: FDA-Public Use
  Company Number: TR-MYLANLABS-2016M1057286

PATIENT

DRUGS (4)
  1. VITAMIN D                          /00107901/ [Concomitant]
     Active Substance: ERGOCALCIFEROL
     Indication: PRODUCT USED FOR UNKNOWN INDICATION
  2. MERCAPTAMINE [Suspect]
     Active Substance: CYSTEAMINE
     Dosage: 12 TIMES DAILY
     Route: 047
  3. MERCAPTAMINE HYDROCHLORIDE [Suspect]
     Active Substance: CYSTEAMINE HYDROCHLORIDE
     Indication: CYSTINOSIS
     Dosage: 12 TIMES, QD
     Route: 047
  4. MERCAPTAMINE [Suspect]
     Active Substance: CYSTEAMINE
     Indication: CYSTINOSIS
     Dosage: 1 G/M2 AND INCREASED TO 1.9 G/M2
     Route: 048

REACTIONS (2)
  - Pneumonia [Fatal]
  - Treatment noncompliance [Unknown]
